FAERS Safety Report 16336280 (Version 2)
Quarter: 2019Q2

REPORT INFORMATION
  Report Type: Spontaneous
  Country: US (occurrence: US)
  Receive Date: 20190521
  Receipt Date: 20190629
  Transmission Date: 20190711
  Serious: No
  Sender: FDA-Public Use
  Company Number: PHEH2019US021437

PATIENT

DRUGS (2)
  1. AZOPT [Suspect]
     Active Substance: BRINZOLAMIDE
     Indication: PRODUCT USED FOR UNKNOWN INDICATION
     Dosage: UNK UNK, TID
     Route: 047
  2. AZOPT [Suspect]
     Active Substance: BRINZOLAMIDE
     Dosage: UNK UNK, TID
     Route: 047
     Dates: start: 20190320

REACTIONS (4)
  - Product quality issue [Unknown]
  - Ocular discomfort [Recovering/Resolving]
  - Eye discharge [Recovering/Resolving]
  - Eye infection [Recovering/Resolving]

NARRATIVE: CASE EVENT DATE: 20190322
